FAERS Safety Report 24448121 (Version 1)
Quarter: 2024Q4

REPORT INFORMATION
  Report Type: Other
  Country: NL (occurrence: NL)
  Receive Date: 20241016
  Receipt Date: 20241016
  Transmission Date: 20250115
  Serious: Yes (Death)
  Sender: BIONPHARMA INC.
  Company Number: NL-Bion-014096

PATIENT
  Age: 67 Year
  Sex: Male

DRUGS (7)
  1. DEXAMETHASONE [Suspect]
     Active Substance: DEXAMETHASONE
     Indication: Burkitt^s lymphoma
  2. RITUXIMAB [Concomitant]
     Active Substance: RITUXIMAB
     Indication: Burkitt^s lymphoma
  3. PREDNISOLONE [Concomitant]
     Active Substance: PREDNISOLONE
     Indication: Burkitt^s lymphoma
  4. ETOPOSIDE [Concomitant]
     Active Substance: ETOPOSIDE
     Indication: Burkitt^s lymphoma
  5. CHLORAMBUCIL [Concomitant]
     Active Substance: CHLORAMBUCIL
     Indication: Burkitt^s lymphoma
  6. IDELALISIB [Concomitant]
     Active Substance: IDELALISIB
     Indication: Burkitt^s lymphoma
  7. LOMUSTINE [Concomitant]
     Active Substance: LOMUSTINE
     Indication: Burkitt^s lymphoma

REACTIONS (1)
  - Drug ineffective [Fatal]
